FAERS Safety Report 12389020 (Version 1)
Quarter: 2016Q2

REPORT INFORMATION
  Report Type: Spontaneous
  Country: US (occurrence: US)
  Receive Date: 20160520
  Receipt Date: 20160520
  Transmission Date: 20160815
  Serious: Yes (Other)
  Sender: FDA-Public Use
  Company Number: US-ASTELLAS-2016US019456

PATIENT
  Sex: Male

DRUGS (1)
  1. XTANDI [Suspect]
     Active Substance: ENZALUTAMIDE
     Indication: PROSTATE CANCER
     Route: 048
     Dates: start: 20151028

REACTIONS (5)
  - Underdose [Unknown]
  - Fatigue [Unknown]
  - Syncope [Unknown]
  - Syncope [Unknown]
  - Syncope [Unknown]

NARRATIVE: CASE EVENT DATE: 20151028
